FAERS Safety Report 12807440 (Version 1)
Quarter: 2016Q4

REPORT INFORMATION
  Report Type: Spontaneous
  Country: US (occurrence: US)
  Receive Date: 20161004
  Receipt Date: 20161004
  Transmission Date: 20170207
  Serious: Yes (Hospitalization)
  Sender: FDA-Public Use
  Company Number: None

PATIENT
  Sex: Female
  Weight: 15.7 kg

DRUGS (9)
  1. CYCLOPHOSPHAMIDE. [Suspect]
     Active Substance: CYCLOPHOSPHAMIDE
     Dates: end: 20160826
  2. PEG-L-ASPARAGINASE [Suspect]
     Active Substance: PEGASPARGASE
     Dates: end: 20160909
  3. VINCRISTINE SULFATE. [Suspect]
     Active Substance: VINCRISTINE SULFATE
     Dates: end: 20160909
  4. CYTARABINE. [Suspect]
     Active Substance: CYTARABINE
     Dates: end: 20150905
  5. DEXAMETHASONE. [Suspect]
     Active Substance: DEXAMETHASONE
     Dates: end: 20160804
  6. METHOTREXATE. [Suspect]
     Active Substance: METHOTREXATE
     Dates: end: 20160902
  7. MERCAPTOPURINE. [Suspect]
     Active Substance: MERCAPTOPURINE
     Dates: end: 20160629
  8. THIOGUANINE (6-TG) [Suspect]
     Active Substance: THIOGUANINE ANHYDROUS
     Dates: end: 20160908
  9. DOXORUBICIN HYDROCHLORIDE. [Suspect]
     Active Substance: DOXORUBICIN HYDROCHLORIDE
     Dates: end: 20160719

REACTIONS (1)
  - Sepsis [None]

NARRATIVE: CASE EVENT DATE: 20160909
